FAERS Safety Report 14901084 (Version 1)
Quarter: 2018Q2

REPORT INFORMATION
  Report Type: Spontaneous
  Country: PH (occurrence: PH)
  Receive Date: 20180516
  Receipt Date: 20180516
  Transmission Date: 20180711
  Serious: Yes (Death, Other)
  Sender: FDA-Public Use
  Company Number: PH-PFIZER INC-2018197207

PATIENT
  Age: 39 Year
  Sex: Male

DRUGS (3)
  1. AMINOLEBAN [Suspect]
     Active Substance: AMINO ACIDS
     Dosage: UNK
  2. AMLODIPINE BESILATE [Suspect]
     Active Substance: AMLODIPINE BESYLATE
     Indication: HYPERTENSION
     Dosage: UNK, 1X/DAY (5 OR 10 MG (IN THE AFTERNOON)
  3. LOSARTAN. [Suspect]
     Active Substance: LOSARTAN
     Indication: HYPERTENSION
     Dosage: UNK, 1X/DAY 5MG/ 10 MG, QD (AT NIGHT)
     Dates: start: 20170801, end: 20170910

REACTIONS (1)
  - Death [Fatal]

NARRATIVE: CASE EVENT DATE: 20170919
